FAERS Safety Report 18086916 (Version 4)
Quarter: 2021Q1

REPORT INFORMATION
  Report Type: Spontaneous
  Country: DE (occurrence: DE)
  Receive Date: 20200729
  Receipt Date: 20210106
  Transmission Date: 20210419
  Serious: Yes (Other)
  Sender: FDA-Public Use
  Company Number: DE-ROCHE-2650237

PATIENT
  Sex: Male
  Weight: 105 kg

DRUGS (1)
  1. ALECENSA [Suspect]
     Active Substance: ALECTINIB HYDROCHLORIDE
     Indication: NON-SMALL CELL LUNG CANCER
     Route: 048
     Dates: start: 20171125

REACTIONS (2)
  - Splenomegaly [Not Recovered/Not Resolved]
  - Hereditary spherocytosis [Not Recovered/Not Resolved]

NARRATIVE: CASE EVENT DATE: 2020
